FAERS Safety Report 15315063 (Version 1)
Quarter: 2018Q3

REPORT INFORMATION
  Report Type: Spontaneous
  Country: US (occurrence: US)
  Receive Date: 20180815
  Receipt Date: 20180815
  Transmission Date: 20181010
  Serious: Yes (Other)
  Sender: FDA-Public Use
  Company Number: None

PATIENT
  Age: 49 Year
  Sex: Female
  Weight: 94.5 kg

DRUGS (13)
  1. VALIUM [Concomitant]
     Active Substance: DIAZEPAM
  2. FLEXERIL [Concomitant]
     Active Substance: CYCLOBENZAPRINE HYDROCHLORIDE
  3. RAMODOL [Concomitant]
  4. VITAMIN D [Concomitant]
     Active Substance: CHOLECALCIFEROL
  5. GLUCOSAMINE [Concomitant]
     Active Substance: GLUCOSAMINE
  6. PERCOCET [Concomitant]
     Active Substance: ACETAMINOPHEN\OXYCODONE HYDROCHLORIDE
  7. CORTEF [Concomitant]
     Active Substance: HYDROCORTISONE
  8. MULTIVITAMIN [Concomitant]
     Active Substance: VITAMINS
  9. MYLAN LIDOCAINE PATCH 5% [Suspect]
     Active Substance: LIDOCAINE
     Indication: MYOFASCIAL PAIN SYNDROME
     Dosage: ?          QUANTITY:1 PATCH(ES);?
     Route: 062
     Dates: start: 20180701
  10. MYLAN LIDOCAINE PATCH 5% [Suspect]
     Active Substance: LIDOCAINE
     Indication: PAIN
     Dosage: ?          QUANTITY:1 PATCH(ES);?
     Route: 062
     Dates: start: 20180701
  11. TENS [Concomitant]
  12. MUSCLE STIMULATOR [Concomitant]
  13. GABAPENTIN. [Concomitant]
     Active Substance: GABAPENTIN

REACTIONS (4)
  - Drug ineffective [None]
  - Product adhesion issue [None]
  - Muscle spasticity [None]
  - Inadequate analgesia [None]

NARRATIVE: CASE EVENT DATE: 20180815
